FAERS Safety Report 5079283-3 (Version None)
Quarter: 2006Q3

REPORT INFORMATION
  Report Type: 
  Country: None (occurrence: None)
  Receive Date: 20060808
  Receipt Date: 20060726
  Transmission Date: 20061208
  Serious: Yes (Hospitalization, Other)
  Sender: FDA-Public Use
  Company Number: 2006086890

PATIENT
  Age: 54 Year
  Sex: Male
  Weight: 81.6475 kg

DRUGS (1)
  1. BEXTRA [Suspect]
     Indication: BACK PAIN
     Dosage: 40 MG (20 MG 2 IN 1 D)
     Dates: start: 20030424, end: 20050217

REACTIONS (5)
  - AMNESIA [None]
  - CARDIAC DISORDER [None]
  - CEREBROVASCULAR ACCIDENT [None]
  - DEPRESSION [None]
  - VISUAL ACUITY REDUCED [None]
